FAERS Safety Report 7285368-3 (Version None)
Quarter: 2011Q1

REPORT INFORMATION
  Report Type: 
  Country: None (occurrence: None)
  Receive Date: 20110121
  Receipt Date: 20090124
  Transmission Date: 20110831
  Serious: No
  Sender: FDA-Public Use
  Company Number: AE 2009-015

PATIENT
  Age: 23 Year
  Sex: Male

DRUGS (1)
  1. FAZACLO ODT [Suspect]
     Indication: SCHIZOPHRENIA
     Dosage: 300 MG DAILY PO
     Route: 048
     Dates: start: 20080310, end: 20081209

REACTIONS (3)
  - NAUSEA [None]
  - WEIGHT DECREASED [None]
  - DYSPHAGIA [None]
